FAERS Safety Report 17079600 (Version 2)
Quarter: 2020Q1

REPORT INFORMATION
  Report Type: Spontaneous
  Country: SI (occurrence: SI)
  Receive Date: 20191127
  Receipt Date: 20200113
  Transmission Date: 20200409
  Serious: Yes (Other)
  Sender: FDA-Public Use
  Company Number: SI-BEH-2019109742

PATIENT
  Age: 6 Year
  Sex: Female

DRUGS (5)
  1. WILATE - VON WILLEBRAND FACTOR/COAGULATION FACTOR VIII COMPLEX (HUMAN) [Suspect]
     Active Substance: HUMAN COAGULATION FACTOR VIII/VON WILLEBRAND FACTOR COMPLEX
     Indication: VON WILLEBRAND^S DISEASE
     Dosage: 60 INTERNATIONAL UNIT/KILOGRAM, SINGLE
     Route: 065
  2. HAEMATE P [Suspect]
     Active Substance: ANTIHEMOPHILIC FACTOR HUMAN
     Indication: VON WILLEBRAND^S DISEASE
     Dosage: 31 EXPOSURE DAYS
     Route: 065
  3. HAEMATE P [Suspect]
     Active Substance: ANTIHEMOPHILIC FACTOR HUMAN
     Indication: VON WILLEBRAND^S DISEASE
     Dosage: 31 EXPOSURE DAYS
     Route: 065
  4. WILATE - VON WILLEBRAND FACTOR/COAGULATION FACTOR VIII COMPLEX (HUMAN) [Suspect]
     Active Substance: HUMAN COAGULATION FACTOR VIII/VON WILLEBRAND FACTOR COMPLEX
     Dosage: 20 INTERNATIONAL UNIT/KILOGRAM, SINGLE
     Route: 065
  5. WILATE - VON WILLEBRAND FACTOR/COAGULATION FACTOR VIII COMPLEX (HUMAN) [Suspect]
     Active Substance: HUMAN COAGULATION FACTOR VIII/VON WILLEBRAND FACTOR COMPLEX
     Dosage: 60 INTERNATIONAL UNIT/KILOGRAM, SINGLE
     Route: 065

REACTIONS (4)
  - Hypersensitivity [Recovered/Resolved]
  - Von Willebrand^s factor inhibition [Not Recovered/Not Resolved]
  - Urticaria [Recovered/Resolved]
  - Dizziness [Recovered/Resolved]
